FAERS Safety Report 10019373 (Version 1)
Quarter: 2014Q1

REPORT INFORMATION
  Report Type: Spontaneous
  Country: US (occurrence: US)
  Receive Date: 20140318
  Receipt Date: 20140318
  Transmission Date: 20141002
  Serious: No
  Sender: FDA-Public Use
  Company Number: US-TEVA-469307USA

PATIENT
  Age: 95 Year
  Sex: Female
  Weight: 62.2 kg

DRUGS (6)
  1. QNASL [Suspect]
     Indication: RHINORRHOEA
     Route: 055
     Dates: start: 20140314
  2. LOSARTAN [Concomitant]
     Indication: HYPERTENSION
  3. KLOR-CON [Concomitant]
     Indication: MINERAL SUPPLEMENTATION
  4. LASIX [Concomitant]
     Indication: LOCAL SWELLING
  5. NEUPOGEN [Concomitant]
     Indication: WHITE BLOOD CELL COUNT INCREASED
  6. FOLIC ACID [Concomitant]
     Indication: VITAMIN SUPPLEMENTATION

REACTIONS (2)
  - Nasal discomfort [Not Recovered/Not Resolved]
  - Pain [Not Recovered/Not Resolved]
